FAERS Safety Report 8215157-4 (Version None)
Quarter: 2012Q1

REPORT INFORMATION
  Report Type: 
  Country: None (occurrence: None)
  Receive Date: 20120229
  Receipt Date: 20110503
  Transmission Date: 20120608
  Serious: Yes (Hospitalization, Other)
  Sender: FDA-Public Use
  Company Number: PHHY2011US22922

PATIENT
  Age: 56 Year
  Sex: Male

DRUGS (7)
  1. NEORAL [Suspect]
     Indication: LIVER TRANSPLANT
     Dosage: 50 MG, BID, ORAL
     Route: 048
  2. DEITELDINE [Concomitant]
  3. HYDROXYZINE [Concomitant]
  4. LASIX [Concomitant]
  5. MULTIVITAMINS (ASCORBIC ACID, ERGOCALCIFEROL, FOLIC ACID, NICOTINAMIDE [Concomitant]
  6. TAXOL [Concomitant]
  7. PREDNISONE TAB [Concomitant]

REACTIONS (5)
  - PNEUMONIA [None]
  - CARDIAC FAILURE CONGESTIVE [None]
  - BLOOD PRESSURE INCREASED [None]
  - RENAL INJURY [None]
  - RENAL FAILURE [None]
